FAERS Safety Report 12636671 (Version 1)
Quarter: 2016Q3

REPORT INFORMATION
  Report Type: Spontaneous
  Country: DE (occurrence: DE)
  Receive Date: 20160809
  Receipt Date: 20160809
  Transmission Date: 20161109
  Serious: Yes (Congenital Anomaly, Other)
  Sender: FDA-Public Use
  Company Number: DE-SUN PHARMACEUTICAL INDUSTRIES LTD-2016RR-121766

PATIENT
  Age: 1 Day
  Sex: Male
  Weight: 3.17 kg

DRUGS (14)
  1. MIRTAZAPIN [Suspect]
     Active Substance: MIRTAZAPINE
     Indication: DEPRESSION
     Dosage: DOSAGE BETWEEN 30 AND 60 MG/D; 0.-38.1. GESTATIONAL WEEK
     Route: 064
     Dates: start: 20150706, end: 20160329
  2. SERTRALINE [Concomitant]
     Active Substance: SERTRALINE HYDROCHLORIDE
     Indication: DEPRESSION
     Dosage: 50 [MG/D]/IF REQUIRED, SELDOM?; 36.-37. GESTATIONAL WEEK
     Route: 064
  3. ANXUT [Concomitant]
     Indication: DEPRESSION
     Dosage: 30 [MG/D]/DOSAGE BETWEEN 10 AND 30 MG/D; 0.-24. GESTATIONAL WEEK
     Route: 064
  4. ANAFRANIL [Suspect]
     Active Substance: CLOMIPRAMINE HYDROCHLORIDE
     Indication: DEPRESSION
     Dosage: 150 [MG/D]/IF REQUIRED, ABOUT EVERY THIRD DAY; 0.-38.1. GESTATIONAL WEEK
     Route: 064
     Dates: start: 20150706, end: 20160329
  5. CITALOPRAM [Concomitant]
     Active Substance: CITALOPRAM HYDROBROMIDE
     Indication: DEPRESSION
     Dosage: 20 MG, QD, 0.-8. GESTATIONAL WEEK
     Route: 064
  6. INUVAIR [Concomitant]
     Active Substance: BECLOMETHASONE DIPROPIONATE\FORMOTEROL FUMARATE
     Indication: ASTHMA
     Dosage: LONG TIME EXPOSURE
     Route: 064
  7. BISOPROLOL [Concomitant]
     Active Substance: BISOPROLOL
     Indication: HYPERTENSION
     Dosage: 5 MG, QD; 0.-38.1. GESTATIONAL WEEK
     Route: 064
     Dates: start: 20150706, end: 20160329
  8. INSULIN HUMAN [Concomitant]
     Active Substance: INSULIN HUMAN
     Indication: GESTATIONAL DIABETES
     Dosage: 30.-38.1. GESTATIONAL WEEK
     Route: 064
  9. ELONTRIL [Concomitant]
     Active Substance: BUPROPION HYDROCHLORIDE
     Indication: DEPRESSION
     Dosage: 150 MG, DAILY, FOUR TIMES, UNKNOWN TRIMESTER
     Route: 064
  10. AMISULPRIDE [Suspect]
     Active Substance: AMISULPRIDE
     Indication: DEPRESSION
     Dosage: DOSAGE BETWEEN 100 AND 300 MG/D; 0.-38.1. GESTATIONAL WEEK
     Route: 064
     Dates: start: 20150706, end: 20160329
  11. METHYLDOPA. [Concomitant]
     Active Substance: METHYLDOPA
     Indication: HYPERTENSION
     Dosage: 250 MG, QD; 8.-38.1 GESTATIONAL WEEK
     Route: 064
  12. SALBUTAMOL [Concomitant]
     Active Substance: ALBUTEROL
     Indication: ASTHMA
     Dosage: LONG TERM EXPOSURE
     Route: 064
  13. FOLSAEURE (NEM) [Concomitant]
     Indication: PROPHYLAXIS OF NEURAL TUBE DEFECT
     Dosage: 0.4 MG, QD; 0.-38.1. GESTATIONAL WEEK
     Route: 064
     Dates: start: 20150706, end: 20160329
  14. TREVILOR RETARD [Suspect]
     Active Substance: VENLAFAXINE HYDROCHLORIDE
     Indication: DEPRESSION
     Dosage: 300 [MG/D]/REDUCED TO 150 MG/D; 0.-38.1. GESTATIONAL WEEK
     Route: 064
     Dates: start: 20150706, end: 20160329

REACTIONS (6)
  - Persistent foetal circulation [Recovered/Resolved]
  - Cryptorchism [Recovered/Resolved]
  - Neonatal respiratory failure [Recovered/Resolved]
  - Congenital inguinal hernia [Recovered/Resolved with Sequelae]
  - Drug withdrawal syndrome neonatal [Recovered/Resolved]
  - Patent ductus arteriosus [Unknown]

NARRATIVE: CASE EVENT DATE: 20160329
